FAERS Safety Report 10563932 (Version 2)
Quarter: 2014Q4

REPORT INFORMATION
  Report Type: Spontaneous
  Country: GB (occurrence: GB)
  Receive Date: 20141104
  Receipt Date: 20141117
  Transmission Date: 20150529
  Serious: Yes (Other)
  Sender: FDA-Public Use
  Company Number: GB-PFIZER INC-2014302557

PATIENT
  Age: 65 Year
  Sex: Male
  Weight: 102 kg

DRUGS (7)
  1. ADCAL [Concomitant]
     Dosage: UNK
     Dates: start: 20140723, end: 20140820
  2. VARDENAFIL [Concomitant]
     Active Substance: VARDENAFIL
     Dosage: UNK
     Dates: start: 20140701, end: 20140729
  3. NORTRIPTYLINE [Concomitant]
     Active Substance: NORTRIPTYLINE
     Dosage: UNK
     Dates: start: 20141014
  4. RAMIPRIL. [Suspect]
     Active Substance: RAMIPRIL
     Dosage: UNK
     Route: 065
     Dates: start: 20140919
  5. CO-PROXAMOL [Concomitant]
     Active Substance: ACETAMINOPHEN\PROPOXYPHENE HYDROCHLORIDE
     Dosage: UNK
     Dates: start: 20140701
  6. INDAPAMIDE. [Concomitant]
     Active Substance: INDAPAMIDE
     Dosage: UNK
     Dates: start: 20140701
  7. TADALAFIL [Concomitant]
     Active Substance: TADALAFIL
     Dosage: UNK
     Dates: start: 20140701, end: 20140729

REACTIONS (2)
  - Hyperhidrosis [Unknown]
  - Cough [Unknown]

NARRATIVE: CASE EVENT DATE: 20141017
